FAERS Safety Report 20606406 (Version 1)
Quarter: 2022Q1

REPORT INFORMATION
  Report Type: Spontaneous
  Country: SK (occurrence: SK)
  Receive Date: 20220317
  Receipt Date: 20220317
  Transmission Date: 20220423
  Serious: Yes (Death, Hospitalization)
  Sender: FDA-Public Use
  Company Number: SK-NOVARTISPH-NVSC2022SK061396

PATIENT
  Sex: Male

DRUGS (1)
  1. ENTRESTO [Suspect]
     Active Substance: SACUBITRIL\VALSARTAN
     Indication: Product used for unknown indication
     Dosage: 200 MG (97/103 MG: 97.2 MG SACUBITRIL AND 102.8 MG VALSARTAN)
     Route: 065

REACTIONS (1)
  - Cardiac failure [Fatal]
